FAERS Safety Report 12465365 (Version 3)
Quarter: 2016Q3

REPORT INFORMATION
  Report Type: Spontaneous
  Country: US (occurrence: US)
  Receive Date: 20160614
  Receipt Date: 20160907
  Transmission Date: 20161109
  Serious: Yes (Other)
  Sender: FDA-Public Use
  Company Number: US-PFIZER INC-2016291041

PATIENT
  Age: 31 Year
  Sex: Male

DRUGS (1)
  1. BENEFIX [Suspect]
     Active Substance: COAGULATION FACTOR IX RECOMBINANT HUMAN\ISOPROPYL ALCOHOL
     Dosage: 9000 IU, AS NEEDED

REACTIONS (4)
  - Haemorrhage [Recovered/Resolved]
  - Back pain [Recovered/Resolved]
  - Neck pain [Unknown]
  - Myalgia [Not Recovered/Not Resolved]
